FAERS Safety Report 16724669 (Version 1)
Quarter: 2019Q3

REPORT INFORMATION
  Report Type: Spontaneous
  Country: IN (occurrence: IN)
  Receive Date: 20190821
  Receipt Date: 20190821
  Transmission Date: 20191005
  Serious: Yes (Other)
  Sender: FDA-Public Use
  Company Number: IN-MYLANLABS-2019M1077456

PATIENT
  Age: 43 Year
  Sex: Male

DRUGS (1)
  1. IMATINIB. [Suspect]
     Active Substance: IMATINIB MESYLATE
     Indication: CHRONIC MYELOID LEUKAEMIA (IN REMISSION)
     Dosage: 400 MILLIGRAM, QD
     Route: 065
     Dates: start: 2013, end: 201801

REACTIONS (4)
  - Iron deficiency anaemia [Unknown]
  - Melaena [Recovered/Resolved]
  - Hypofibrinogenaemia [Recovered/Resolved]
  - Platelet dysfunction [Recovered/Resolved]
